FAERS Safety Report 17218524 (Version 1)
Quarter: 2020Q1

REPORT INFORMATION
  Report Type: Spontaneous
  Country: US (occurrence: US)
  Receive Date: 20191230
  Receipt Date: 20191230
  Transmission Date: 20200409
  Serious: No
  Sender: FDA-Public Use
  Company Number: None

PATIENT
  Age: 59 Year
  Sex: Male

DRUGS (5)
  1. LOSARTAN POTASSIUM 25MG TABLETS [Concomitant]
     Active Substance: LOSARTAN POTASSIUM
     Dates: start: 20170926
  2. CALCIFEROL DROPS 8000UNITS/ML [Concomitant]
     Dates: start: 20170926
  3. LANSOPRAZOLE 15MG DR CAPSULES [Concomitant]
     Dates: start: 20170926
  4. ENBREL [Suspect]
     Active Substance: ETANERCEPT
     Indication: PSORIATIC ARTHROPATHY
     Dosage: ?          OTHER FREQUENCY:ONCE A WEEK;?
     Route: 058
     Dates: start: 20180918
  5. LORATADINE 10MG TABLETS [Concomitant]
     Dates: start: 20170926

REACTIONS (1)
  - Upper respiratory tract infection [None]

NARRATIVE: CASE EVENT DATE: 20191227
